FAERS Safety Report 5398662-8 (Version None)
Quarter: 2007Q3

REPORT INFORMATION
  Report Type: 
  Country: None (occurrence: None)
  Receive Date: 20070726
  Receipt Date: 20061221
  Transmission Date: 20080115
  Serious: No
  Sender: FDA-Public Use
  Company Number: US-AMGEN-KDL205436

PATIENT
  Sex: Male
  Weight: 88.1 kg

DRUGS (7)
  1. PROCRIT [Suspect]
     Indication: ANAEMIA OF MALIGNANT DISEASE
     Route: 058
     Dates: start: 20061204
  2. VENOFER [Concomitant]
  3. MEGACE [Concomitant]
  4. LORTAB [Concomitant]
  5. INDOCIN [Concomitant]
  6. GEMZAR [Concomitant]
  7. CARBOPLATIN [Concomitant]

REACTIONS (3)
  - SERUM FERRITIN INCREASED [None]
  - THERAPEUTIC RESPONSE DELAYED [None]
  - TRANSFERRIN SATURATION DECREASED [None]
